FAERS Safety Report 5647371-6 (Version None)
Quarter: 2008Q1

REPORT INFORMATION
  Report Type: 
  Country: None (occurrence: None)
  Receive Date: 20080228
  Receipt Date: 20080215
  Transmission Date: 20080703
  Serious: Yes (Hospitalization)
  Sender: FDA-Public Use
  Company Number: 2008S1002678

PATIENT
  Sex: Female

DRUGS (2)
  1. PIROXICAM [Suspect]
     Dates: start: 20060201
  2. PIROXICAM [Suspect]

REACTIONS (11)
  - ANXIETY [None]
  - BLISTER [None]
  - DEPRESSION [None]
  - FEAR [None]
  - GENERAL PHYSICAL HEALTH DETERIORATION [None]
  - ORAL INTAKE REDUCED [None]
  - PAIN [None]
  - RASH [None]
  - SCAR [None]
  - SKIN EXFOLIATION [None]
  - WOUND [None]
